FAERS Safety Report 5860107-9 (Version None)
Quarter: 2008Q3

REPORT INFORMATION
  Report Type: 
  Country: None (occurrence: None)
  Receive Date: 20080827
  Receipt Date: 20080815
  Transmission Date: 20090109
  Serious: No
  Sender: FDA-Public Use
  Company Number: JP-PFIZER INC-2008041683

PATIENT
  Sex: Female

DRUGS (19)
  1. CELECOX [Interacting]
     Indication: PAIN
     Route: 048
     Dates: start: 20080404, end: 20080530
  2. WARFARIN SODIUM [Interacting]
     Indication: PULMONARY EMBOLISM
     Route: 048
     Dates: start: 20070301
  3. ASPIRIN [Suspect]
     Indication: ANGINA PECTORIS
     Route: 048
  4. ALENDRONATE SODIUM [Concomitant]
     Indication: OSTEOPOROSIS
     Dosage: TEXT:35 MG/ WEEK
     Route: 048
     Dates: start: 20080404, end: 20080505
  5. ALFACALCIDOL [Concomitant]
     Indication: OSTEOPOROSIS
     Route: 048
  6. OPALMON [Concomitant]
     Route: 048
  7. SHAKUYAKU-KANZO-TO [Concomitant]
     Route: 048
  8. ADOFEED [Concomitant]
  9. SELOKEN [Concomitant]
     Indication: ANGINA PECTORIS
     Dosage: DAILY DOSE:20MG
     Route: 048
  10. RIZE [Concomitant]
     Route: 048
  11. ITOROL [Concomitant]
     Indication: ANGINA PECTORIS
     Route: 048
  12. LASIX [Concomitant]
     Indication: OEDEMA PERIPHERAL
     Route: 048
  13. SIGMART [Concomitant]
     Indication: ANGINA PECTORIS
     Route: 048
  14. URINORM [Concomitant]
     Indication: HYPERURICAEMIA
     Route: 048
  15. LIVALO [Concomitant]
     Indication: HYPERCHOLESTEROLAEMIA
     Dosage: DAILY DOSE:2MG
     Route: 048
  16. MICARDIS [Concomitant]
     Indication: HYPERTENSION
     Dosage: DAILY DOSE:20MG
     Route: 048
  17. MAGNESIUM SULFATE [Concomitant]
     Indication: CONSTIPATION
     Route: 048
  18. TOFRANIL [Concomitant]
     Route: 048
  19. BUP-4 [Concomitant]
     Route: 048

REACTIONS (6)
  - DRUG INTERACTION [None]
  - GASTRIC ULCER [None]
  - HAEMORRHAGE SUBCUTANEOUS [None]
  - INTERNATIONAL NORMALISED RATIO INCREASED [None]
  - PLATELET COUNT INCREASED [None]
  - PROTHROMBIN TIME PROLONGED [None]
